FAERS Safety Report 14776560 (Version 2)
Quarter: 2018Q2

REPORT INFORMATION
  Report Type: Spontaneous
  Country: FR (occurrence: FR)
  Receive Date: 20180418
  Receipt Date: 20180430
  Transmission Date: 20180711
  Serious: Yes (Hospitalization, Other)
  Sender: FDA-Public Use
  Company Number: PHHY2018FR065356

PATIENT
  Age: 34 Year
  Sex: Male
  Weight: 83 kg

DRUGS (5)
  1. ESOMEPRAZOLE [Concomitant]
     Active Substance: ESOMEPRAZOLE
     Indication: PRODUCT USED FOR UNKNOWN INDICATION
     Dosage: 20 MG, QD
     Route: 048
     Dates: start: 20180112
  2. COSENTYX [Suspect]
     Active Substance: SECUKINUMAB
     Indication: SAPHO SYNDROME
     Dosage: 300 MG, UNK
     Route: 058
     Dates: start: 20180112
  3. METHOTREXATE. [Concomitant]
     Active Substance: METHOTREXATE
     Indication: SAPHO SYNDROME
     Dosage: 20 MG, QW
     Route: 058
     Dates: start: 20171201
  4. METHOTREXATE. [Concomitant]
     Active Substance: METHOTREXATE
     Dosage: 25 MG, QW
     Route: 058
     Dates: start: 20180112
  5. CHRONO-INDOCID [Concomitant]
     Active Substance: INDOMETHACIN
     Indication: SAPHO SYNDROME
     Dosage: 75 MG, QD
     Route: 048
     Dates: start: 20180112

REACTIONS (7)
  - Osteitis [Recovering/Resolving]
  - Muscle hypertrophy [Unknown]
  - Tooth avulsion [Unknown]
  - Product use in unapproved indication [Unknown]
  - Weight decreased [Unknown]
  - Haemophilus infection [Unknown]
  - Streptococcal abscess [Recovering/Resolving]

NARRATIVE: CASE EVENT DATE: 20180112
